FAERS Safety Report 20824817 (Version 1)
Quarter: 2022Q2

REPORT INFORMATION
  Report Type: Spontaneous
  Country: FR (occurrence: FR)
  Receive Date: 20220513
  Receipt Date: 20220513
  Transmission Date: 20220721
  Serious: Yes (Life-Threatening, Hospitalization)
  Sender: FDA-Public Use
  Company Number: None

PATIENT
  Age: 67 Year
  Sex: Female
  Weight: 48.4 kg

DRUGS (3)
  1. CISPLATIN [Suspect]
     Active Substance: CISPLATIN
     Indication: Oesophageal squamous cell carcinoma
     Dosage: UNIT DOSE: 80 MG/M2, FREQUENCY TIME : 3 WEEK, DURATION : 1 DAY
     Route: 041
     Dates: start: 20220325, end: 20220325
  2. FLUOROURACIL [Suspect]
     Active Substance: FLUOROURACIL
     Indication: Oesophageal squamous cell carcinoma
     Dosage: UNIT DOSE: 4350 MG, : 3 WEEKS, DURATION : 1 DAY
     Route: 041
     Dates: start: 20220325, end: 20220325
  3. KEYTRUDA [Suspect]
     Active Substance: PEMBROLIZUMAB
     Indication: Oesophageal squamous cell carcinoma
     Dosage: UNIT DOSE: 200 MG, STRENGTH: 25 MG/ML, FREQUENCY TIME : 3 WEEK, DURATION : 1 DAY
     Route: 041
     Dates: start: 20220325, end: 20220325

REACTIONS (1)
  - Myopericarditis [Recovering/Resolving]

NARRATIVE: CASE EVENT DATE: 20220413
